FAERS Safety Report 7287309-1 (Version None)
Quarter: 2011Q1

REPORT INFORMATION
  Report Type: 
  Country: None (occurrence: None)
  Receive Date: 20110112
  Receipt Date: 20110112
  Transmission Date: 20110831
  Serious: Yes (Other)
  Sender: FDA-Public Use
  Company Number: None

PATIENT
  Age: 33 Year
  Sex: Male
  Weight: 115.4 kg

DRUGS (2)
  1. DOXIL [Suspect]
     Indication: LYMPHOMA
     Dosage: 100MG ONCE IV DRIP
     Route: 041
     Dates: start: 20101214, end: 20101215
  2. DOXIL [Suspect]

REACTIONS (7)
  - MEDICATION ERROR [None]
  - DYSPNOEA [None]
  - CHEST DISCOMFORT [None]
  - MUSCULOSKELETAL PAIN [None]
  - DRUG DISPENSING ERROR [None]
  - ERYTHEMA [None]
  - WRONG DRUG ADMINISTERED [None]
